FAERS Safety Report 6305130-5 (Version None)
Quarter: 2009Q3

REPORT INFORMATION
  Report Type: 
  Country: None (occurrence: None)
  Receive Date: 20090811
  Receipt Date: 20090730
  Transmission Date: 20100115
  Serious: Yes (Hospitalization)
  Sender: FDA-Public Use
  Company Number: JP-PFIZER INC-2009249942

PATIENT
  Age: 89 Year

DRUGS (1)
  1. SALAZOPYRIN [Suspect]
     Dosage: UNK
     Route: 048

REACTIONS (1)
  - ANAEMIA FOLATE DEFICIENCY [None]
